FAERS Safety Report 13078012 (Version 4)
Quarter: 2017Q3

REPORT INFORMATION
  Report Type: Spontaneous
  Country: US (occurrence: US)
  Receive Date: 20170102
  Receipt Date: 20170727
  Transmission Date: 20171127
  Serious: Yes (Other)
  Sender: FDA-Public Use
  Company Number: US-B.I. PHARMACEUTICALS,INC./RIDGEFIELD-2016-BI-087333

PATIENT
  Sex: Female

DRUGS (1)
  1. PERSANTINE [Suspect]
     Active Substance: DIPYRIDAMOLE
     Indication: PRODUCT USED FOR UNKNOWN INDICATION
     Dosage: ADMINISTRATION CORRECT? NR(NOT REPORTED) ?ACTION(S) TAKEN WITH PRODUCT: NOT REPORTED
     Route: 065

REACTIONS (8)
  - Drug dependence [Unknown]
  - Piloerection [Unknown]
  - Sensitisation [Unknown]
  - Depressed mood [Unknown]
  - Anxiety [Unknown]
  - Pain [Unknown]
  - Frustration tolerance decreased [Unknown]
  - Malaise [Unknown]
